FAERS Safety Report 8655421 (Version 3)
Quarter: 2012Q4

REPORT INFORMATION
  Report Type: 
  Country: JP (occurrence: JP)
  Receive Date: 20120709
  Receipt Date: 20121226
  Transmission Date: 20130627
  Serious: Yes (Disabling, Other)
  Sender: FDA-Public Use
  Company Number: JP-ROCHE-1082891

PATIENT
  Age: 37 Year
  Sex: Female
  Weight: 45 kg

DRUGS (3)
  1. TAMIFLU [Suspect]
     Indication: INFLUENZA
     Dosage: Dosage is uncertain.
     Route: 048
     Dates: start: 20120206, end: 20120210
  2. MEDICON [Suspect]
     Indication: INFLUENZA
     Dosage: Dosage is uncertain.
     Route: 048
     Dates: start: 20120206, end: 20120210
  3. MUCODYNE [Suspect]
     Indication: INFLUENZA
     Dosage: Dosage is uncertain.
     Route: 048
     Dates: start: 20120206, end: 20120210

REACTIONS (2)
  - Toxic epidermal necrolysis [Recovering/Resolving]
  - Hepatic function abnormal [Recovering/Resolving]
